FAERS Safety Report 10047326 (Version 1)
Quarter: 2014Q1

REPORT INFORMATION
  Report Type: Spontaneous
  Country: US (occurrence: US)
  Receive Date: 20140331
  Receipt Date: 20140331
  Transmission Date: 20141002
  Serious: No
  Sender: FDA-Public Use
  Company Number: US-MYLANLABS-2014S1001939

PATIENT
  Age: 47 Year
  Sex: Female
  Weight: 97.98 kg

DRUGS (8)
  1. FENTANYL TRANSDERMAL SYSTEM [Suspect]
     Indication: FIBROMYALGIA
     Dosage: Q3D
     Route: 062
     Dates: start: 20140116
  2. XANAX [Concomitant]
     Route: 048
  3. TRAZODONE [Concomitant]
     Route: 048
  4. SOMA [Concomitant]
     Route: 048
  5. ZOFRAN [Concomitant]
     Route: 048
  6. TOPROL [Concomitant]
     Route: 048
  7. GABAPENTIN [Concomitant]
     Route: 048
  8. ZANAFLEX [Concomitant]
     Route: 048

REACTIONS (1)
  - Application site pain [Recovered/Resolved]
